FAERS Safety Report 25936812 (Version 1)
Quarter: 2025Q4

REPORT INFORMATION
  Report Type: Report from Study
  Country: IN (occurrence: IN)
  Receive Date: 20251017
  Receipt Date: 20251017
  Transmission Date: 20260118
  Serious: Yes (Death, Other)
  Sender: DAIICHI
  Company Number: IN-AstraZeneca-CH-00970743A

PATIENT
  Age: 40 Year
  Sex: Female
  Weight: 34 kg

DRUGS (1)
  1. ENHERTU [Suspect]
     Active Substance: FAM-TRASTUZUMAB DERUXTECAN-NXKI
     Indication: HER2 positive breast cancer
     Dosage: 200 MG, ONCE EVERY 3 WK
     Route: 041

REACTIONS (3)
  - Metastases to bone [Fatal]
  - Haemoglobin decreased [Fatal]
  - Platelet count decreased [Fatal]
